FAERS Safety Report 13250204 (Version 1)
Quarter: 2017Q1

REPORT INFORMATION
  Report Type: Spontaneous
  Country: JP (occurrence: JP)
  Receive Date: 20170218
  Receipt Date: 20170218
  Transmission Date: 20170428
  Serious: Yes (Hospitalization)
  Sender: FDA-Public Use
  Company Number: JP-BION-005986

PATIENT
  Age: 37 Year
  Sex: Male

DRUGS (2)
  1. LEVOMEPROMAZINE [Suspect]
     Active Substance: LEVOMEPROMAZINE
     Indication: AGITATION
  2. VALPROIC ACID (UNKNOWN MAH) [Suspect]
     Active Substance: VALPROIC ACID
     Indication: AGITATION

REACTIONS (1)
  - Neuroleptic malignant syndrome [Recovering/Resolving]
